FAERS Safety Report 17127490 (Version 3)
Quarter: 2020Q1

REPORT INFORMATION
  Report Type: Spontaneous
  Country: US (occurrence: US)
  Receive Date: 20191209
  Receipt Date: 20200306
  Transmission Date: 20200409
  Serious: Yes (Death, Other)
  Sender: FDA-Public Use
  Company Number: US-GLAXOSMITHKLINE-US2019AMR221576

PATIENT
  Age: 81 Year
  Sex: Female
  Weight: 109.75 kg

DRUGS (1)
  1. LAMICTAL [Suspect]
     Active Substance: LAMOTRIGINE
     Indication: PRODUCT USED FOR UNKNOWN INDICATION
     Dosage: 200 MG, BID
     Route: 048

REACTIONS (3)
  - Death [Fatal]
  - Product dose omission [Unknown]
  - Bone disorder [Unknown]

NARRATIVE: CASE EVENT DATE: 20191128
